FAERS Safety Report 16799504 (Version 1)
Quarter: 2019Q3

REPORT INFORMATION
  Report Type: Spontaneous
  Country: CN (occurrence: CN)
  Receive Date: 20190912
  Receipt Date: 20190912
  Transmission Date: 20191005
  Serious: Yes (Life-Threatening, Hospitalization)
  Sender: FDA-Public Use
  Company Number: CN-PFIZER INC-2019391534

PATIENT
  Age: 52 Year
  Sex: Female
  Weight: 45 kg

DRUGS (3)
  1. ENDOXAN [Suspect]
     Active Substance: CYCLOPHOSPHAMIDE
     Indication: BREAST CANCER
     Dosage: 0.8 G, 1X/DAY
     Route: 041
     Dates: start: 20190820, end: 20190820
  2. PHARMORUBICIN [Suspect]
     Active Substance: EPIRUBICIN
     Indication: BREAST CANCER
     Dosage: 130 MG, 1X/DAY
     Route: 041
     Dates: start: 20190820, end: 20190820
  3. SODIUM CHLORIDE 0.9% [Concomitant]
     Active Substance: SODIUM CHLORIDE
     Dosage: 0.9%  SODIUM CHLORIDE 250ML + EPIRUBICIN 130MG; 0.9% SODIUM CHLORIDE 100ML + CYCLOPHOSPHAMIDE 0.8G
     Route: 041
     Dates: start: 20190820, end: 20190820

REACTIONS (5)
  - Septic shock [Recovering/Resolving]
  - Bone marrow failure [Recovering/Resolving]
  - Somnolence [Recovering/Resolving]
  - Hepatic function abnormal [Recovering/Resolving]
  - Vaginal haemorrhage [Recovering/Resolving]

NARRATIVE: CASE EVENT DATE: 20190827
